FAERS Safety Report 10306044 (Version 5)
Quarter: 2016Q1

REPORT INFORMATION
  Report Type: Spontaneous
  Country: US (occurrence: US)
  Receive Date: 20140715
  Receipt Date: 20160105
  Transmission Date: 20160525
  Serious: Yes (Death, Hospitalization, Other)
  Sender: FDA-Public Use
  Company Number: US-GLAXOSMITHKLINE-A1080764A

PATIENT
  Age: 77 Year
  Sex: Male

DRUGS (10)
  1. NEURONTIN [Concomitant]
     Active Substance: GABAPENTIN
  2. WARFARIN [Concomitant]
     Active Substance: WARFARIN
  3. COREG [Suspect]
     Active Substance: CARVEDILOL
     Indication: CARDIAC DISORDER
     Dosage: 12.5 MG, U
  4. LIPITOR [Suspect]
     Active Substance: ATORVASTATIN CALCIUM
     Indication: PRODUCT USED FOR UNKNOWN INDICATION
     Route: 065
  5. ASPIRIN. [Concomitant]
     Active Substance: ASPIRIN
  6. COREG [Suspect]
     Active Substance: CARVEDILOL
     Indication: CARDIAC FAILURE
     Dosage: 12.5 MG TABLETS
     Dates: start: 2003
  7. COREG [Suspect]
     Active Substance: CARVEDILOL
     Indication: BLOOD PRESSURE MEASUREMENT
     Dosage: 12.5 MG TWICE DAILY
     Route: 048
     Dates: start: 2009
  8. SIMVASTATIN. [Concomitant]
     Active Substance: SIMVASTATIN
  9. LOSARTAN. [Concomitant]
     Active Substance: LOSARTAN
  10. PEPCID [Concomitant]
     Active Substance: FAMOTIDINE

REACTIONS (29)
  - Sleep apnoea syndrome [Recovering/Resolving]
  - Pain in extremity [Recovered/Resolved]
  - Colon cancer [Recovering/Resolving]
  - Transfusion [Recovering/Resolving]
  - Neoplasm malignant [Unknown]
  - Choking sensation [Recovered/Resolved]
  - Atrioventricular block [Recovering/Resolving]
  - Mass [Recovering/Resolving]
  - Colectomy [Recovering/Resolving]
  - Volume blood decreased [Recovering/Resolving]
  - Hospitalisation [Unknown]
  - Sepsis [Recovering/Resolving]
  - Movement disorder [Unknown]
  - Dysstasia [Unknown]
  - Dementia Alzheimer^s type [Unknown]
  - Functional gastrointestinal disorder [Unknown]
  - Infection [Unknown]
  - Pyrexia [Recovering/Resolving]
  - Cardioversion [Recovering/Resolving]
  - Myocardial infarction [Unknown]
  - Death [Fatal]
  - Intestinal mass [Recovering/Resolving]
  - Coronary artery bypass [Recovering/Resolving]
  - Hypoacusis [Not Recovered/Not Resolved]
  - Throat irritation [Recovered/Resolved]
  - Musculoskeletal pain [Recovered/Resolved]
  - Pneumonia [Recovering/Resolving]
  - Memory impairment [Unknown]
  - Angina pectoris [Recovering/Resolving]

NARRATIVE: CASE EVENT DATE: 20141211
